FAERS Safety Report 14657746 (Version 3)
Quarter: 2018Q2

REPORT INFORMATION
  Report Type: Spontaneous
  Country: DE (occurrence: DE)
  Receive Date: 20180320
  Receipt Date: 20180427
  Transmission Date: 20180711
  Serious: Yes (Other)
  Sender: FDA-Public Use
  Company Number: DE-SUN PHARMACEUTICAL INDUSTRIES LTD-2018RR-167155

PATIENT
  Sex: Female
  Weight: 43 kg

DRUGS (5)
  1. OXALIPLATIN. [Suspect]
     Active Substance: OXALIPLATIN
     Indication: ADENOCARCINOMA OF COLON
     Dosage: 119.39 CYCLIC
     Route: 042
     Dates: start: 20160425, end: 20161010
  2. ONCOFOLIC [Concomitant]
     Active Substance: FOLATE SODIUM
     Dosage: 300 MG, CYCLIC
     Route: 042
     Dates: start: 20180426
  3. 5-FU MEDAC [Suspect]
     Active Substance: FLUOROURACIL
     Indication: ADENOCARCINOMA OF COLON
     Dosage: LAST ADMINISTRATION BEFORE AE ONSET: 08-AUG-2016
     Route: 042
     Dates: start: 20160509, end: 20161010
  4. GRANISETRON [Concomitant]
     Active Substance: GRANISETRON
     Indication: PREMEDICATION
     Dosage: 30 MIN BEFORE
     Route: 065
  5. ONCOFOLIC [Concomitant]
     Active Substance: FOLATE SODIUM
     Indication: ADENOCARCINOMA OF COLON
     Dosage: LAST ADMINISTRATION BEFORE AE ONSET: 09-AUG-2016
     Route: 042
     Dates: start: 20160509, end: 20161010

REACTIONS (1)
  - Thrombotic thrombocytopenic purpura [Recovered/Resolved]

NARRATIVE: CASE EVENT DATE: 20160822
